FAERS Safety Report 9639735 (Version 1)
Quarter: 2013Q4

REPORT INFORMATION
  Report Type: Spontaneous
  Country: US (occurrence: None)
  Receive Date: 20131021
  Receipt Date: 20131021
  Transmission Date: 20140711
  Serious: Yes (Other)
  Sender: FDA-Public Use
  Company Number: None

PATIENT
  Age: 36 Year
  Sex: Male
  Weight: 97.52 kg

DRUGS (1)
  1. ADDERALL XR [Suspect]
     Indication: CIRCADIAN RHYTHM SLEEP DISORDER
     Dosage: 1 PILL 20MG ONCE DAILY TAKEN BY MOUTH
     Route: 048
     Dates: start: 20131015, end: 20131019

REACTIONS (6)
  - Drug ineffective [None]
  - Gastric disorder [None]
  - Abdominal discomfort [None]
  - Reaction to colouring [None]
  - Product quality issue [None]
  - Product substitution issue [None]
